FAERS Safety Report 25988048 (Version 2)
Quarter: 2025Q4

REPORT INFORMATION
  Report Type: Spontaneous
  Country: JP (occurrence: JP)
  Receive Date: 20251103
  Receipt Date: 20251204
  Transmission Date: 20260117
  Serious: Yes (Death)
  Sender: ROCHE
  Company Number: JP-CHUGAI-2025034563

PATIENT
  Age: 8 Decade
  Sex: Male

DRUGS (1)
  1. ROZLYTREK [Suspect]
     Active Substance: ENTRECTINIB
     Indication: Renal cancer
     Dosage: UNK
     Route: 048
     Dates: end: 20220516

REACTIONS (2)
  - Death [Fatal]
  - Gastrointestinal disorder [Unknown]
